FAERS Safety Report 24105437 (Version 7)
Quarter: 2024Q4

REPORT INFORMATION
  Report Type: Report from Study
  Country: CZ (occurrence: CZ)
  Receive Date: 20240717
  Receipt Date: 20241206
  Transmission Date: 20250115
  Serious: Yes (Death, Life-Threatening, Hospitalization, Other)
  Sender: BAXTER
  Company Number: CZ-BAXTER-2024BAX021026

PATIENT
  Age: 71 Year
  Sex: Female
  Weight: 70 kg

DRUGS (17)
  1. CYCLOPHOSPHAMIDE [Suspect]
     Active Substance: CYCLOPHOSPHAMIDE
     Indication: Diffuse large B-cell lymphoma stage III
     Dosage: 1298 MG, EVERY 3 WEEKS
     Route: 042
     Dates: start: 20240318, end: 20240527
  2. EPCORITAMAB [Suspect]
     Active Substance: EPCORITAMAB
     Indication: Diffuse large B-cell lymphoma stage III
     Dosage: 48 MG C1 (STEP-UP), CYCLES 2 - 4 (21-DAY CYCLE, WEEKLY DOSE), C5 - 8 (21-DAY CYCLE, EVERY 3 WEEKS) P
     Route: 058
     Dates: start: 20240318, end: 20240617
  3. DOXORUBICIN [Suspect]
     Active Substance: DOXORUBICIN
     Indication: Diffuse large B-cell lymphoma stage III
     Dosage: 87 MG, EVERY 3 WEEKS
     Route: 042
     Dates: start: 20240318, end: 20240527
  4. PREDNISONE [Suspect]
     Active Substance: PREDNISONE
     Indication: Diffuse large B-cell lymphoma stage III
     Dosage: 100 MG, DAILY C1-6, DAY 1-5, EVERY 1 DAY
     Route: 048
     Dates: start: 20240319, end: 20240531
  5. RITUXIMAB [Suspect]
     Active Substance: RITUXIMAB
     Indication: Diffuse large B-cell lymphoma stage III
     Dosage: 649 MG, EVERY 3 WEEKS
     Route: 042
     Dates: start: 20240318, end: 20240527
  6. VINCRISTINE [Suspect]
     Active Substance: VINCRISTINE
     Indication: Diffuse large B-cell lymphoma stage III
     Dosage: 2 MG, EVERY 3 WEEKS
     Route: 042
     Dates: start: 20240318, end: 20240527
  7. OMEPRAZOLE [Concomitant]
     Active Substance: OMEPRAZOLE
     Indication: Gastrooesophageal reflux disease
     Dosage: 20 MG, EVERY 24 HOURS (START DATE: 2019)
     Route: 065
  8. NITRENDIPINE [Concomitant]
     Active Substance: NITRENDIPINE
     Indication: Hypertension
     Dosage: 20 MG, EVERY 24 HOURS (START DATE: 1987)
     Route: 065
  9. Vigantol [Concomitant]
     Indication: Vitamin D deficiency
     Dosage: 30 DROPS, 2/WEEKS
     Route: 065
     Dates: start: 20240311
  10. Purinol [Concomitant]
     Indication: Prophylaxis
     Dosage: 300 MG, 2/DAYS
     Route: 065
     Dates: start: 20240311
  11. POTASSIUM CHLORIDE [Concomitant]
     Active Substance: POTASSIUM CHLORIDE
     Indication: Prophylaxis
     Dosage: 1 G, 2/DAYS
     Route: 065
     Dates: start: 20240313
  12. ENOXAPARIN SODIUM [Concomitant]
     Active Substance: ENOXAPARIN SODIUM
     Indication: Thrombosis prophylaxis
     Dosage: 0.4 MG FREQUENCY: EVERY EVENING, EVERY 1 DAYS
     Route: 065
     Dates: start: 20240411
  13. VALACYCLOVIR HYDROCHLORIDE [Concomitant]
     Active Substance: VALACYCLOVIR HYDROCHLORIDE
     Indication: Cytomegalovirus infection
     Dosage: 450 MG, 2/DAYS
     Route: 065
     Dates: start: 20240517
  14. ESCITALOPRAM [Concomitant]
     Active Substance: ESCITALOPRAM OXALATE
     Indication: Depression
     Dosage: 10 MG, EVERY 1 DAYS
     Route: 065
     Dates: start: 20240617
  15. DEXAMETHASONE [Concomitant]
     Active Substance: DEXAMETHASONE
     Indication: Prophylaxis
     Dosage: 12 MG, EVERY 1 DAYS
     Route: 065
     Dates: start: 20240521, end: 20240523
  16. IMODIUM [Concomitant]
     Active Substance: LOPERAMIDE HYDROCHLORIDE
     Indication: Diarrhoea
     Dosage: 2 MG, TOTAL
     Route: 065
     Dates: start: 20240617
  17. HYDROCHLOROTHIAZIDE\VALSARTAN [Concomitant]
     Active Substance: HYDROCHLOROTHIAZIDE\VALSARTAN
     Indication: Hypertension
     Dosage: 80/12.5 MG, EVERY 24 HOURS (START DATE: 2010)
     Route: 065

REACTIONS (5)
  - Pulmonary embolism [Fatal]
  - Pneumocystis jirovecii pneumonia [Not Recovered/Not Resolved]
  - Urinary tract infection [Recovered/Resolved]
  - General physical health deterioration [Not Recovered/Not Resolved]
  - Pulmonary embolism [Recovered/Resolved]

NARRATIVE: CASE EVENT DATE: 20240620
